FAERS Safety Report 12282780 (Version 1)
Quarter: 2016Q2

REPORT INFORMATION
  Report Type: Spontaneous
  Country: DE (occurrence: DE)
  Receive Date: 20160419
  Receipt Date: 20160419
  Transmission Date: 20160815
  Serious: Yes (Hospitalization)
  Sender: FDA-Public Use
  Company Number: DE-PROCTER_AND_GAMBLE-GS16044542

PATIENT

DRUGS (1)
  1. OLAY TOTAL EFFECTS MOISTURIZER PLUS SERUM DUO BROAD SPECTRUM SPF 15 [Suspect]
     Active Substance: AVOBENZONE\HOMOSALATE\OCTISALATE\OCTOCRYLENE
     Route: 061

REACTIONS (4)
  - Application site swelling [None]
  - Swelling face [Unknown]
  - Application site erythema [None]
  - Erythema [Unknown]
